FAERS Safety Report 8567082-7 (Version None)
Quarter: 2012Q3

REPORT INFORMATION
  Report Type: 
  Country: None (occurrence: None)
  Receive Date: 20120803
  Receipt Date: 20111205
  Transmission Date: 20120928
  Serious: No
  Sender: FDA-Public Use
  Company Number: US-ABBOTT-11P-163-0880861-00

PATIENT
  Sex: Female

DRUGS (7)
  1. UNKNOWN STATIN [Concomitant]
     Indication: BLOOD CHOLESTEROL INCREASED
  2. PLAVIX [Concomitant]
     Indication: THROMBOSIS PROPHYLAXIS
  3. TRICOR [Concomitant]
     Indication: BLOOD CHOLESTEROL INCREASED
  4. NIASPAN [Suspect]
     Indication: BLOOD CHOLESTEROL INCREASED
     Dates: start: 20111101
  5. LOVASA [Concomitant]
     Indication: BLOOD CHOLESTEROL INCREASED
  6. LOTREL [Concomitant]
     Indication: HYPERTENSION
  7. METAMUCIL-2 [Concomitant]
     Indication: CONSTIPATION

REACTIONS (3)
  - VOMITING [None]
  - CONSTIPATION [None]
  - NAUSEA [None]
